FAERS Safety Report 8399857-1 (Version None)
Quarter: 2012Q2

REPORT INFORMATION
  Report Type: 
  Country: None (occurrence: None)
  Receive Date: 20120531
  Receipt Date: 20120508
  Transmission Date: 20120825
  Serious: No
  Sender: FDA-Public Use
  Company Number: US-BAYER-2012-049318

PATIENT

DRUGS (5)
  1. CLARITIN [Concomitant]
  2. SUDAFED 12 HOUR [Concomitant]
  3. ALEVE (CAPLET) [Suspect]
     Indication: PRODUCT USED FOR UNKNOWN INDICATION
     Route: 048
  4. ZYRTEC [Concomitant]
  5. IBUPROFEN (ADVIL) [Concomitant]

REACTIONS (1)
  - NO ADVERSE EVENT [None]
